FAERS Safety Report 9729835 (Version 2)
Quarter: 2014Q1

REPORT INFORMATION
  Report Type: Spontaneous
  Country: US (occurrence: US)
  Receive Date: 20131204
  Receipt Date: 20140129
  Transmission Date: 20141002
  Serious: No
  Sender: FDA-Public Use
  Company Number: US-TEVA-448973USA

PATIENT
  Age: 30 Year
  Sex: Female
  Weight: 96.25 kg

DRUGS (3)
  1. PLAN B ONE-STEP [Suspect]
     Indication: POST COITAL CONTRACEPTION
     Dosage: 1.5 MILLIGRAM DAILY;
     Route: 048
     Dates: start: 20131103, end: 20131103
  2. CENTRUM [Concomitant]
     Indication: VITAMIN SUPPLEMENTATION
  3. FISH OIL [Concomitant]
     Indication: NUTRITIONAL SUPPLEMENTATION

REACTIONS (2)
  - Menstruation delayed [Recovered/Resolved]
  - Menstruation irregular [Recovered/Resolved]
